FAERS Safety Report 14375574 (Version 1)
Quarter: 2018Q1

REPORT INFORMATION
  Report Type: Spontaneous
  Country: US (occurrence: US)
  Receive Date: 20180110
  Receipt Date: 20180110
  Transmission Date: 20180509
  Serious: No
  Sender: FDA-Public Use
  Company Number: None

PATIENT
  Age: 87 Year
  Sex: Female
  Weight: 62.6 kg

DRUGS (12)
  1. ELIQUIS [Suspect]
     Active Substance: APIXABAN
     Indication: ATRIAL FIBRILLATION
     Route: 048
     Dates: start: 20170418, end: 20171231
  2. THYROID ESSENTIALS [Concomitant]
  3. VITAMIN D3 [Concomitant]
     Active Substance: CHOLECALCIFEROL
  4. MULTI VITAMINS [Concomitant]
     Active Substance: VITAMINS
  5. ELIQUIS [Suspect]
     Active Substance: APIXABAN
     Indication: THROMBOSIS PROPHYLAXIS
     Route: 048
     Dates: start: 20170418, end: 20171231
  6. VITAMIN B [Concomitant]
     Active Substance: VITAMIN B
  7. MELATONIN [Concomitant]
     Active Substance: MELATONIN
  8. TOPAMAX [Concomitant]
     Active Substance: TOPIRAMATE
  9. NORTRIPTYLINE [Concomitant]
     Active Substance: NORTRIPTYLINE
  10. LEVOTHYROXINE. [Concomitant]
     Active Substance: LEVOTHYROXINE
  11. BRIMONIDINE [Concomitant]
     Active Substance: BRIMONIDINE TARTRATE
  12. TOPICAL LIDOCAINE [Concomitant]
     Active Substance: LIDOCAINE

REACTIONS (12)
  - Urinary tract infection [None]
  - Erythema [None]
  - Urinary incontinence [None]
  - Hypoaesthesia [None]
  - Incontinence [None]
  - Asthenia [None]
  - Formication [None]
  - Blood chloride increased [None]
  - Blood test abnormal [None]
  - Fatigue [None]
  - Pruritus [None]
  - Rash [None]

NARRATIVE: CASE EVENT DATE: 20170815
